FAERS Safety Report 12491752 (Version 3)
Quarter: 2016Q3

REPORT INFORMATION
  Report Type: Report from Study
  Country: US (occurrence: US)
  Receive Date: 20160623
  Receipt Date: 20160817
  Transmission Date: 20161109
  Serious: Yes (Hospitalization)
  Sender: FDA-Public Use
  Company Number: PHEH2016US015361

PATIENT
  Sex: Female

DRUGS (1)
  1. EXELON PATCH [Suspect]
     Active Substance: RIVASTIGMINE
     Indication: PRODUCT USED FOR UNKNOWN INDICATION
     Dosage: UNK
     Route: 062

REACTIONS (7)
  - Contusion [Unknown]
  - Fluid retention [Unknown]
  - Arthropod bite [Unknown]
  - Localised infection [Unknown]
  - Pain of skin [Unknown]
  - Thrombosis [Unknown]
  - Weight decreased [Unknown]
